FAERS Safety Report 14814854 (Version 2)
Quarter: 2018Q2

REPORT INFORMATION
  Report Type: Spontaneous
  Country: CN (occurrence: CN)
  Receive Date: 20180426
  Receipt Date: 20180613
  Transmission Date: 20180711
  Serious: Yes (Hospitalization)
  Sender: FDA-Public Use
  Company Number: US-ASTRAZENECA-2018SE56026

PATIENT
  Age: 80 Year
  Sex: Male

DRUGS (8)
  1. RHINOCORT AQUA [Suspect]
     Active Substance: BUDESONIDE
     Indication: RHINITIS
     Route: 045
     Dates: end: 20180407
  2. RHINOCORT AQUA [Suspect]
     Active Substance: BUDESONIDE
     Indication: RHINITIS PERENNIAL
     Route: 045
     Dates: start: 20161117
  3. RHINOCORT AQUA [Suspect]
     Active Substance: BUDESONIDE
     Indication: RHINITIS PERENNIAL
     Route: 045
     Dates: start: 20161117
  4. RHINOCORT AQUA [Suspect]
     Active Substance: BUDESONIDE
     Indication: RHINITIS PERENNIAL
     Route: 045
     Dates: end: 20180407
  5. RHINOCORT AQUA [Suspect]
     Active Substance: BUDESONIDE
     Indication: RHINITIS
     Route: 045
     Dates: end: 20180407
  6. RHINOCORT AQUA [Suspect]
     Active Substance: BUDESONIDE
     Indication: RHINITIS
     Route: 045
     Dates: start: 20161117
  7. RHINOCORT AQUA [Suspect]
     Active Substance: BUDESONIDE
     Indication: RHINITIS PERENNIAL
     Route: 045
     Dates: end: 20180407
  8. RHINOCORT AQUA [Suspect]
     Active Substance: BUDESONIDE
     Indication: RHINITIS
     Route: 045
     Dates: start: 20161117

REACTIONS (3)
  - Intestinal metaplasia [Not Recovered/Not Resolved]
  - Gastritis erosive [Not Recovered/Not Resolved]
  - Cachexia [None]

NARRATIVE: CASE EVENT DATE: 2017
